FAERS Safety Report 5156303-9 (Version None)
Quarter: 2006Q4

REPORT INFORMATION
  Report Type: 
  Country: None (occurrence: None)
  Receive Date: 20061122
  Receipt Date: 20061121
  Transmission Date: 20070319
  Serious: Yes (Other)
  Sender: FDA-Public Use
  Company Number: US-GLAXOSMITHKLINE-A0628313A

PATIENT
  Age: 58 Year
  Sex: Female

DRUGS (2)
  1. LAMICTAL [Suspect]
     Dosage: 100MG PER DAY
     Route: 048
     Dates: start: 20060601, end: 20060801
  2. XANAX [Concomitant]

REACTIONS (11)
  - ABDOMINAL DISTENSION [None]
  - ALANINE AMINOTRANSFERASE INCREASED [None]
  - ASCITES [None]
  - ASPARTATE AMINOTRANSFERASE INCREASED [None]
  - CHOLANGITIS SCLEROSING [None]
  - DIZZINESS [None]
  - HEPATIC CIRRHOSIS [None]
  - LOCAL SWELLING [None]
  - NAUSEA [None]
  - OEDEMA PERIPHERAL [None]
  - PYREXIA [None]
